FAERS Safety Report 8490704-6 (Version None)
Quarter: 2012Q3

REPORT INFORMATION
  Report Type: 
  Country: None (occurrence: None)
  Receive Date: 20120706
  Receipt Date: 20120702
  Transmission Date: 20120928
  Serious: Yes (Life-Threatening, Hospitalization)
  Sender: FDA-Public Use
  Company Number: IT-AMGEN-ITASP2012040835

PATIENT
  Sex: Male

DRUGS (2)
  1. NPLATE [Suspect]
     Indication: THROMBOCYTOPENIA
     Dosage: 75 MG, QWK
     Route: 058
     Dates: start: 20120528, end: 20120605
  2. FOLIC ACID [Concomitant]

REACTIONS (2)
  - THROMBOSIS MESENTERIC VESSEL [None]
  - ILEECTOMY [None]
